FAERS Safety Report 7350222-5 (Version None)
Quarter: 2011Q1

REPORT INFORMATION
  Report Type: 
  Country: None (occurrence: None)
  Receive Date: 20110309
  Receipt Date: 20110309
  Transmission Date: 20110831
  Serious: No
  Sender: FDA-Public Use
  Company Number: None

PATIENT

DRUGS (1)
  1. CVS ACID CONTROLLER TABLET 20MG DR. REDDY'S LABORATORIES LTD [Suspect]
     Indication: DYSPEPSIA
     Dosage: 20MP 1X PO
     Route: 048
     Dates: start: 20110301, end: 20110306

REACTIONS (4)
  - NAUSEA [None]
  - PRODUCT QUALITY ISSUE [None]
  - ABDOMINAL DISCOMFORT [None]
  - INSOMNIA [None]
